FAERS Safety Report 21536363 (Version 1)
Quarter: 2022Q4

REPORT INFORMATION
  Report Type: Spontaneous
  Country: US (occurrence: US)
  Receive Date: 20221101
  Receipt Date: 20221101
  Transmission Date: 20230112
  Serious: No
  Sender: FDA-Public Use
  Company Number: US-PFIZER INC-PV202200093398

PATIENT
  Age: 57 Year
  Sex: Female

DRUGS (1)
  1. XELJANZ [Suspect]
     Active Substance: TOFACITINIB CITRATE
     Indication: Spinal osteoarthritis
     Dosage: 5MG, 2X/DAY (ON 5 BID DOSING)

REACTIONS (4)
  - Pain [Unknown]
  - Swelling [Not Recovered/Not Resolved]
  - Condition aggravated [Unknown]
  - Arthritis [Unknown]
